FAERS Safety Report 13110555 (Version 1)
Quarter: 2017Q1

REPORT INFORMATION
  Report Type: Spontaneous
  Country: US (occurrence: US)
  Receive Date: 20170112
  Receipt Date: 20170112
  Transmission Date: 20170428
  Serious: No
  Sender: FDA-Public Use
  Company Number: US-ROCHE-1100868

PATIENT
  Age: 38 Year
  Sex: Male

DRUGS (5)
  1. HEPARIN [Concomitant]
     Active Substance: HEPARIN SODIUM
     Dosage: 5000 UNITS
     Route: 042
  2. LIDOCAINE. [Concomitant]
     Active Substance: LIDOCAINE
     Route: 042
  3. ACTIVASE [Suspect]
     Active Substance: ALTEPLASE
     Indication: ACUTE MYOCARDIAL INFARCTION
     Dosage: 50 CC PER HOUR
     Route: 040
  4. CARDIZEM [Concomitant]
     Active Substance: DILTIAZEM HYDROCHLORIDE
     Route: 065
  5. ACTIVASE [Suspect]
     Active Substance: ALTEPLASE
     Dosage: 20 CC PER HOUR
     Route: 040

REACTIONS (1)
  - Headache [Unknown]
